FAERS Safety Report 8033594-8 (Version None)
Quarter: 2012Q1

REPORT INFORMATION
  Report Type: 
  Country: None (occurrence: None)
  Receive Date: 20120110
  Receipt Date: 20120110
  Transmission Date: 20120608
  Serious: Yes (Hospitalization)
  Sender: FDA-Public Use
  Company Number: TW-ROCHE-1028808

PATIENT

DRUGS (10)
  1. AMBROXOL [Concomitant]
  2. TREXAN (HUNGARY) [Concomitant]
     Indication: RHEUMATOID ARTHRITIS
  3. CIMETIDINE [Concomitant]
  4. MABTHERA [Suspect]
     Indication: RHEUMATOID ARTHRITIS
     Route: 042
     Dates: start: 20100728
  5. PLAQUENIL [Concomitant]
     Indication: RHEUMATOID ARTHRITIS
  6. FOLIC ACID [Concomitant]
     Indication: RHEUMATOID ARTHRITIS
  7. SULFASALAZINE [Concomitant]
     Indication: RHEUMATOID ARTHRITIS
  8. PREDNISOLONE [Concomitant]
     Indication: RHEUMATOID ARTHRITIS
  9. CELEBREX [Concomitant]
     Indication: RHEUMATOID ARTHRITIS
  10. CALCIUM CARBONATE/VITAMIN D NOS [Concomitant]
     Dosage: REPORTED AS: CALCIUM + VITAMIN (CALBO)

REACTIONS (2)
  - FALL [None]
  - FEMUR FRACTURE [None]
